FAERS Safety Report 24445810 (Version 1)
Quarter: 2024Q4

REPORT INFORMATION
  Report Type: Spontaneous
  Country: CN (occurrence: CN)
  Receive Date: 20241016
  Receipt Date: 20241016
  Transmission Date: 20250114
  Serious: Yes (Life-Threatening, Hospitalization)
  Sender: ROCHE
  Company Number: CN-ROCHE-10000102046

PATIENT
  Age: 63 Year
  Sex: Male
  Weight: 78 kg

DRUGS (2)
  1. ATEZOLIZUMAB [Suspect]
     Active Substance: ATEZOLIZUMAB
     Indication: Lung neoplasm malignant
     Route: 042
     Dates: start: 20240905, end: 20240905
  2. FLUZOPARIB [Suspect]
     Active Substance: FLUZOPARIB
     Indication: Lung neoplasm malignant
     Route: 048
     Dates: start: 20240905, end: 20240911

REACTIONS (2)
  - Myelosuppression [Unknown]
  - Ecchymosis [Unknown]

NARRATIVE: CASE EVENT DATE: 20240926
